FAERS Safety Report 7965625-5 (Version None)
Quarter: 2011Q4

REPORT INFORMATION
  Report Type: 
  Country: None (occurrence: None)
  Receive Date: 20111208
  Receipt Date: 20111128
  Transmission Date: 20120403
  Serious: Yes (Other)
  Sender: FDA-Public Use
  Company Number: GB-TEVA-308606ISR

PATIENT
  Age: 27 Year
  Sex: Male

DRUGS (8)
  1. AZITHROMYCIN [Suspect]
     Indication: URETHRITIS
     Dosage: 1000 MILLIGRAM;
     Route: 048
     Dates: start: 20111014
  2. CEPHALEXIN [Suspect]
     Indication: URETHRITIS
     Route: 048
     Dates: start: 20111014, end: 20111019
  3. PROCHLORPERAZINE [Concomitant]
  4. MINIMS CHLORAMPHENICOL [Concomitant]
  5. FLOXACILLIN SODIUM [Concomitant]
  6. METRONIDAZOLE [Concomitant]
  7. ACETAMINOPHEN AND CODEINE PHOSPHATE [Concomitant]
  8. LACTULOSE [Concomitant]

REACTIONS (2)
  - LOSS OF LIBIDO [None]
  - ERECTILE DYSFUNCTION [None]
